FAERS Safety Report 4341469-0 (Version None)
Quarter: 2004Q2

REPORT INFORMATION
  Report Type: 
  Country: None (occurrence: None)
  Receive Date: 20040420
  Receipt Date: 20040414
  Transmission Date: 20050107
  Serious: Yes (Hospitalization)
  Sender: FDA-Public Use
  Company Number: 200412875US

PATIENT
  Sex: Female
  Weight: 71.81 kg

DRUGS (4)
  1. TAXOTERE [Suspect]
     Indication: BREAST CANCER
     Route: 042
     Dates: start: 20040322, end: 20040405
  2. CARBOPLATIN [Suspect]
     Indication: BREAST CANCER
     Dosage: DOSE: AUC=2
     Route: 042
     Dates: start: 20040322, end: 20040405
  3. XELODA [Suspect]
     Indication: BREAST CANCER
     Route: 048
     Dates: start: 20040326, end: 20040408
  4. PERCOCET [Concomitant]
     Dates: start: 20040223

REACTIONS (20)
  - ALANINE AMINOTRANSFERASE INCREASED [None]
  - ANGIOMYOLIPOMA [None]
  - ASPARTATE AMINOTRANSFERASE INCREASED [None]
  - BACTERIA URINE IDENTIFIED [None]
  - BLOOD ALKALINE PHOSPHATASE INCREASED [None]
  - BLOOD CALCIUM DECREASED [None]
  - BLOOD SODIUM DECREASED [None]
  - BREAST CANCER [None]
  - HAEMATOCRIT DECREASED [None]
  - HAEMOGLOBIN DECREASED [None]
  - INTERNATIONAL NORMALISED RATIO DECREASED [None]
  - NEUTROPHIL COUNT DECREASED [None]
  - NITRITE URINE PRESENT [None]
  - OEDEMA PERIPHERAL [None]
  - RED BLOOD CELL COUNT DECREASED [None]
  - RENAL DISORDER [None]
  - RHABDOMYOLYSIS [None]
  - SUBCUTANEOUS ABSCESS [None]
  - ULTRASOUND KIDNEY ABNORMAL [None]
  - URINARY TRACT INFECTION [None]
